FAERS Safety Report 11766318 (Version 1)
Quarter: 2015Q4

REPORT INFORMATION
  Report Type: Spontaneous
  Country: IT (occurrence: IT)
  Receive Date: 20151123
  Receipt Date: 20151123
  Transmission Date: 20160304
  Serious: Yes (Other)
  Sender: FDA-Public Use
  Company Number: IT-CIPLA LTD.-2015IT08631

PATIENT

DRUGS (8)
  1. DONEPEZIL. [Suspect]
     Active Substance: DONEPEZIL
     Indication: DEMENTIA ALZHEIMER^S TYPE
     Dosage: 10 MG, UNK
     Route: 065
  2. ANTIHYPERTENSIVE [Concomitant]
     Active Substance: UNSPECIFIED INGREDIENT
     Route: 065
  3. MEMANTINE. [Suspect]
     Active Substance: MEMANTINE
     Dosage: 20 MG, QD
     Route: 065
  4. ASPIRIN. [Concomitant]
     Active Substance: ASPIRIN
     Dosage: 100 MG, UNK
     Route: 065
  5. OMEPRAZOLE. [Concomitant]
     Active Substance: OMEPRAZOLE
     Dosage: 10 MG, UNK
     Route: 065
  6. ALLOPURINOL. [Concomitant]
     Active Substance: ALLOPURINOL
     Dosage: 300 MG, UNK
     Route: 065
  7. DONEPEZIL. [Suspect]
     Active Substance: DONEPEZIL
     Dosage: 10 MG, UNK
     Route: 065
     Dates: start: 201307
  8. NITRODERIVATIVE PATCH [Concomitant]
     Dosage: 5 MG, UNK
     Route: 065

REACTIONS (12)
  - Rash [Recovered/Resolved]
  - Medication error [Unknown]
  - Lupus-like syndrome [Recovered/Resolved]
  - Antinuclear antibody positive [Recovered/Resolved]
  - Electrocardiogram QT prolonged [Recovered/Resolved]
  - Petechiae [Recovered/Resolved]
  - Dyspnoea [Unknown]
  - Pericarditis [Recovered/Resolved]
  - Urinary casts [Unknown]
  - Pericardial effusion [Recovered/Resolved]
  - Haematuria [Unknown]
  - Musculoskeletal pain [Recovered/Resolved]
